FAERS Safety Report 9655913 (Version 1)
Quarter: 2013Q4

REPORT INFORMATION
  Report Type: Other
  Country: US (occurrence: US)
  Receive Date: 20131030
  Receipt Date: 20131030
  Transmission Date: 20140711
  Serious: Yes (Hospitalization)
  Sender: FDA-Public Use
  Company Number: US-BRISTOL-MYERS SQUIBB COMPANY-19702745

PATIENT
  Age: 66 Year
  Sex: Male

DRUGS (4)
  1. METFORMIN HCL [Suspect]
     Indication: TYPE 2 DIABETES MELLITUS
  2. PAROXETINE [Suspect]
     Indication: MAJOR DEPRESSION
  3. CLARITHROMYCIN [Suspect]
     Indication: BRONCHITIS
  4. ILOPERIDONE [Suspect]
     Indication: MAJOR DEPRESSION

REACTIONS (4)
  - Torsade de pointes [Unknown]
  - Dizziness [Unknown]
  - Presyncope [Unknown]
  - Bronchitis [Unknown]
